FAERS Safety Report 15920600 (Version 3)
Quarter: 2019Q1

REPORT INFORMATION
  Report Type: Spontaneous
  Country: IT (occurrence: IT)
  Receive Date: 20190205
  Receipt Date: 20190220
  Transmission Date: 20190417
  Serious: Yes (Life-Threatening, Hospitalization, Other)
  Sender: FDA-Public Use
  Company Number: PHHY2019IT026430

PATIENT
  Age: 48 Year
  Sex: Female

DRUGS (7)
  1. IBUPROFEN. [Suspect]
     Active Substance: IBUPROFEN
     Indication: PERICARDIAL EFFUSION
     Dosage: 600 MG, TID
     Route: 065
  2. METHYLPREDNISOLONE. [Suspect]
     Active Substance: METHYLPREDNISOLONE
     Indication: PRODUCT USED FOR UNKNOWN INDICATION
     Dosage: 60 MG, QD
     Route: 065
  3. FUROSEMIDE. [Suspect]
     Active Substance: FUROSEMIDE
     Indication: PRODUCT USED FOR UNKNOWN INDICATION
     Dosage: 40 MG, QD
     Route: 065
  4. OSELTAMIVIR [Concomitant]
     Active Substance: OSELTAMIVIR
     Indication: PRODUCT USED FOR UNKNOWN INDICATION
     Dosage: 75 MG, BID (FOR 5 DAYS)
     Route: 065
  5. COLCHICINE. [Suspect]
     Active Substance: COLCHICINE
     Indication: PERICARDIAL EFFUSION
     Dosage: 0.5 MG, BID
     Route: 065
  6. INFLUENZA VACCINE POLYVALENT [Suspect]
     Active Substance: INFLUENZA VIRUS VACCINE
     Indication: PROPHYLAXIS
     Dosage: UNK
     Route: 065
  7. METHYLPREDNISOLONE. [Suspect]
     Active Substance: METHYLPREDNISOLONE
     Dosage: 30 MG, QD (0.5MG/KG)
     Route: 065

REACTIONS (24)
  - Syncope [Recovered/Resolved]
  - Influenza [Recovered/Resolved]
  - Drug ineffective [Recovered/Resolved]
  - Diastolic dysfunction [Recovered/Resolved]
  - Respiratory alkalosis [Unknown]
  - Dyspnoea [Recovered/Resolved]
  - Mitral valve incompetence [Recovered/Resolved]
  - Bundle branch block right [Unknown]
  - Pleural effusion [Unknown]
  - Hypoxia [Recovered/Resolved]
  - Bronchial wall thickening [Unknown]
  - Cardiac murmur [Recovered/Resolved]
  - Vaccination failure [Recovered/Resolved]
  - Metabolic alkalosis [Unknown]
  - Pulmonary hypertension [Unknown]
  - Cardiomegaly [Recovered/Resolved]
  - Tricuspid valve incompetence [Recovered/Resolved]
  - Pericardial effusion [Recovered/Resolved]
  - Urinary incontinence [Recovered/Resolved]
  - Off label use [Unknown]
  - Diarrhoea [Recovered/Resolved]
  - Atelectasis [Unknown]
  - Respiratory failure [Recovered/Resolved]
  - Pericarditis [Recovered/Resolved]
